FAERS Safety Report 21383109 (Version 2)
Quarter: 2022Q4

REPORT INFORMATION
  Report Type: Spontaneous
  Country: US (occurrence: US)
  Receive Date: 20220927
  Receipt Date: 20221003
  Transmission Date: 20230112
  Serious: No
  Sender: FDA-Public Use
  Company Number: US-SANOFI-01288425

PATIENT
  Age: 60 Year
  Sex: Female

DRUGS (4)
  1. TOUJEO MAX [Suspect]
     Active Substance: INSULIN GLARGINE
     Indication: Type 2 diabetes mellitus
     Dosage: UNK
     Dates: start: 20220920
  2. BASAGLAR [Concomitant]
     Active Substance: INSULIN GLARGINE
     Dosage: UNK
  3. NOVOLOG [Concomitant]
     Active Substance: INSULIN ASPART
  4. LYRICA [Concomitant]
     Active Substance: PREGABALIN

REACTIONS (7)
  - Hyperhidrosis [Unknown]
  - Asthenia [Unknown]
  - Headache [Unknown]
  - Constipation [Unknown]
  - Abdominal discomfort [Unknown]
  - Feeling abnormal [Unknown]
  - Blood glucose increased [Unknown]

NARRATIVE: CASE EVENT DATE: 20220921
